FAERS Safety Report 25601538 (Version 1)
Quarter: 2025Q3

REPORT INFORMATION
  Report Type: Spontaneous
  Country: US (occurrence: None)
  Receive Date: 20250724
  Receipt Date: 20250724
  Transmission Date: 20251021
  Serious: No
  Sender: FDA-CTU
  Company Number: None

PATIENT
  Age: 42 Year
  Sex: Female

DRUGS (9)
  1. DUPIXENT [Suspect]
     Active Substance: DUPILUMAB
     Indication: Asthma
     Dosage: 300 MG/ML EVERY 2 WEEKS SUBCUTANEOUS?
     Route: 058
     Dates: start: 20250616, end: 20250701
  2. ACYCLOVIR [Concomitant]
     Active Substance: ACYCLOVIR
  3. ADVAIR HFA [Concomitant]
     Active Substance: FLUTICASONE PROPIONATE\SALMETEROL XINAFOATE
  4. FAMOTIDINE [Concomitant]
     Active Substance: FAMOTIDINE
  5. HYDROCHLOROTHIAZIDE [Concomitant]
     Active Substance: HYDROCHLOROTHIAZIDE
  6. MONTELUKAST [Concomitant]
     Active Substance: MONTELUKAST
  7. OMEPRAZOLE [Concomitant]
     Active Substance: OMEPRAZOLE
  8. VENLAFAXINE [Concomitant]
     Active Substance: VENLAFAXINE HYDROCHLORIDE
  9. RESTASIS [Concomitant]
     Active Substance: CYCLOSPORINE

REACTIONS (5)
  - Pyrexia [None]
  - Headache [None]
  - Arthralgia [None]
  - Dizziness [None]
  - Chest pain [None]

NARRATIVE: CASE EVENT DATE: 20250701
